FAERS Safety Report 9551092 (Version 5)
Quarter: 2013Q4

REPORT INFORMATION
  Report Type: Report from Study
  Country: GR (occurrence: GR)
  Receive Date: 20130925
  Receipt Date: 20131118
  Transmission Date: 20140711
  Serious: Yes (Hospitalization)
  Sender: FDA-Public Use
  Company Number: GR-ROCHE-1280237

PATIENT
  Age: 56 Year
  Sex: Female
  Weight: 65 kg

DRUGS (7)
  1. BEVACIZUMAB [Suspect]
     Indication: RENAL CANCER
     Dosage: BEVACIZUMAB (400 MG,100 MG), LAST DOSE TAKEN PRIOR TO SAE 30/AUG/2013, 670 SINGLE DOSE
     Route: 042
     Dates: start: 20130725, end: 20130830
  2. TEMSIROLIMUS [Suspect]
     Indication: RENAL CANCER
     Dosage: LAS DOSE PRIOR TO SAE TAKEN ON 06/SEP/2013
     Route: 042
     Dates: start: 20130725, end: 20130906
  3. XOZAL [Concomitant]
     Indication: RASH
     Route: 065
     Dates: start: 20130816
  4. GLUCOPHAGE [Concomitant]
     Indication: DIABETES MELLITUS
     Route: 065
     Dates: start: 20130906
  5. L-THYROXINE SODIUM [Concomitant]
     Indication: HYPOTHYROIDISM
     Route: 065
  6. CYCLO 3 FORT [Concomitant]
     Indication: VASODILATATION
     Route: 065
  7. VOLTAREN [Concomitant]
     Indication: CHEST PAIN
     Route: 065
     Dates: start: 20130830

REACTIONS (1)
  - Pneumonia [Recovering/Resolving]
